FAERS Safety Report 9906898 (Version 3)
Quarter: 2014Q1

REPORT INFORMATION
  Report Type: Report from Study
  Country: AT (occurrence: AT)
  Receive Date: 20140218
  Receipt Date: 20140221
  Transmission Date: 20141002
  Serious: Yes (Hospitalization)
  Sender: FDA-Public Use
  Company Number: AT-AMGEN-AUTCT2013071758

PATIENT
  Age: 78 Year
  Sex: Female

DRUGS (2)
  1. DENOSUMAB [Suspect]
     Indication: BONE DENSITY DECREASED
     Dosage: UNK MG, UNK
     Route: 058
     Dates: start: 20080123
  2. EUTHYROX [Concomitant]
     Dosage: 100 MUG, 1 TBL QD
     Route: 048

REACTIONS (2)
  - Bradycardia [Recovered/Resolved]
  - Renal function test abnormal [Recovered/Resolved]
